FAERS Safety Report 18583262 (Version 1)
Quarter: 2020Q4

REPORT INFORMATION
  Report Type: Spontaneous
  Country: US (occurrence: US)
  Receive Date: 20201206
  Receipt Date: 20201206
  Transmission Date: 20210114
  Serious: Yes (Life-Threatening, Hospitalization)
  Sender: FDA-Public Use
  Company Number: US-JNJFOC-20200343475

PATIENT
  Age: 83 Year
  Sex: Female
  Weight: 82.63 kg

DRUGS (1)
  1. DARZALEX [Suspect]
     Active Substance: DARATUMUMAB
     Indication: PLASMA CELL MYELOMA
     Route: 065
     Dates: start: 20200317, end: 20200318

REACTIONS (3)
  - Respiratory failure [Recovered/Resolved]
  - Supraventricular tachycardia [Recovered/Resolved]
  - Urine output decreased [Unknown]

NARRATIVE: CASE EVENT DATE: 20200319
